FAERS Safety Report 15712837 (Version 3)
Quarter: 2022Q3

REPORT INFORMATION
  Report Type: Spontaneous
  Country: US (occurrence: None)
  Receive Date: 20181212
  Receipt Date: 20220930
  Transmission Date: 20221027
  Serious: Yes (Other)
  Sender: FDA-Public Use
  Company Number: 2018SF59248

PATIENT
  Age: 68 Year
  Sex: Female
  Weight: 87.1 kg

DRUGS (24)
  1. PRILOSEC OTC [Suspect]
     Active Substance: OMEPRAZOLE MAGNESIUM
     Indication: Gastrooesophageal reflux disease
     Route: 048
     Dates: start: 201211, end: 201302
  2. OMEPRAZOLE [Suspect]
     Active Substance: OMEPRAZOLE
     Indication: Gastrooesophageal reflux disease
     Route: 065
     Dates: start: 201410
  3. OMEPRAZOLE [Suspect]
     Active Substance: OMEPRAZOLE
     Indication: Gastrooesophageal reflux disease
     Route: 065
     Dates: start: 201501, end: 201506
  4. OMEPRAZOLE [Suspect]
     Active Substance: OMEPRAZOLE
     Indication: Gastrooesophageal reflux disease
     Route: 065
     Dates: start: 201412
  5. OMEPRAZOLE [Suspect]
     Active Substance: OMEPRAZOLE
     Indication: Gastrooesophageal reflux disease
     Route: 065
     Dates: start: 201507, end: 201512
  6. OMEPRAZOLE [Suspect]
     Active Substance: OMEPRAZOLE
     Indication: Gastrooesophageal reflux disease
     Route: 065
     Dates: start: 201705
  7. OMEPRAZOLE [Suspect]
     Active Substance: OMEPRAZOLE
     Indication: Gastrooesophageal reflux disease
     Route: 065
     Dates: start: 201711, end: 201801
  8. JANUVIA [Concomitant]
     Active Substance: SITAGLIPTIN PHOSPHATE
  9. ALBUTEROL [Concomitant]
     Active Substance: ALBUTEROL
  10. ASPIRIN [Concomitant]
     Active Substance: ASPIRIN
  11. ATENOLOL [Concomitant]
     Active Substance: ATENOLOL
  12. FENOFIBRATE [Concomitant]
     Active Substance: FENOFIBRATE
  13. PRILOSEC [Concomitant]
     Active Substance: OMEPRAZOLE MAGNESIUM
  14. PAROXETINE [Concomitant]
     Active Substance: PAROXETINE
  15. VITAMIN E [Concomitant]
     Active Substance: .ALPHA.-TOCOPHEROL
  16. ALLOPURINOL [Concomitant]
     Active Substance: ALLOPURINOL
  17. VALSARTAN [Concomitant]
     Active Substance: VALSARTAN
  18. AMOXICILLIN [Concomitant]
     Active Substance: AMOXICILLIN
  19. METFORMIN [Concomitant]
     Active Substance: METFORMIN HYDROCHLORIDE
  20. PRAVASTATIN [Concomitant]
     Active Substance: PRAVASTATIN
  21. ALPRAZOLAM [Concomitant]
     Active Substance: ALPRAZOLAM
  22. AMLODIPINE [Concomitant]
     Active Substance: AMLODIPINE BESYLATE
  23. LOSARTAN [Concomitant]
     Active Substance: LOSARTAN
  24. HYDROCHLOROTHIAZIDE [Concomitant]
     Active Substance: HYDROCHLOROTHIAZIDE

REACTIONS (3)
  - Chronic kidney disease [Not Recovered/Not Resolved]
  - Acute kidney injury [Unknown]
  - Renal cyst [Unknown]

NARRATIVE: CASE EVENT DATE: 20150101
